FAERS Safety Report 23210917 (Version 1)
Quarter: 2023Q4

REPORT INFORMATION
  Report Type: Spontaneous
  Country: US (occurrence: None)
  Receive Date: 20231120
  Receipt Date: 20231120
  Transmission Date: 20240110
  Serious: Yes (Disabling, Other)
  Sender: FDA-Public Use
  Company Number: None

PATIENT
  Age: 78 Year
  Sex: Female
  Weight: 45 kg

DRUGS (9)
  1. OMNIPAQUE [Suspect]
     Active Substance: IOHEXOL
     Indication: Computerised tomogram abnormal
     Dates: start: 20231117, end: 20231117
  2. OMNIPAQUE [Suspect]
     Active Substance: IOHEXOL
     Indication: Scan with contrast
  3. TAGRISSO [Concomitant]
     Active Substance: OSIMERTINIB
  4. METOPROLOL [Concomitant]
     Active Substance: METOPROLOL
  5. ENOXAPARIN [Concomitant]
     Active Substance: ENOXAPARIN
  6. ATORVASTATIN [Concomitant]
     Active Substance: ATORVASTATIN
  7. PANTOPRAZOLE [Concomitant]
     Active Substance: PANTOPRAZOLE
  8. VITAMIN D NOS [Concomitant]
     Active Substance: VITAMIN D NOS
  9. CYANOCOBALAMIN [Concomitant]
     Active Substance: CYANOCOBALAMIN

REACTIONS (8)
  - Incorrect route of product administration [None]
  - Drug monitoring procedure not performed [None]
  - Wrong technique in device usage process [None]
  - Product container seal issue [None]
  - Diarrhoea [None]
  - Contrast media toxicity [None]
  - General physical condition abnormal [None]
  - Product dispensing error [None]

NARRATIVE: CASE EVENT DATE: 20231117
